FAERS Safety Report 4583662-8 (Version None)
Quarter: 2005Q1

REPORT INFORMATION
  Report Type: 
  Country: None (occurrence: None)
  Receive Date: 20050211
  Receipt Date: 20050202
  Transmission Date: 20050727
  Serious: Yes (Death, Other)
  Sender: FDA-Public Use
  Company Number: 2005-02-0216

PATIENT
  Sex: Female

DRUGS (1)
  1. ALBUTEROL SULFATE [Suspect]
     Dosage: INHALATION
     Route: 055
     Dates: end: 20010101

REACTIONS (8)
  - BLINDNESS [None]
  - CERUMEN IMPACTION [None]
  - COMA [None]
  - DEAFNESS [None]
  - FOAMING AT MOUTH [None]
  - HYPERSENSITIVITY [None]
  - RESPIRATORY ARREST [None]
  - SCREAMING [None]
